FAERS Safety Report 17076967 (Version 1)
Quarter: 2019Q4

REPORT INFORMATION
  Report Type: Other
  Country: GB (occurrence: GB)
  Receive Date: 20191126
  Receipt Date: 20191126
  Transmission Date: 20200122
  Serious: Yes (Other)
  Sender: FDA-Public Use
  Company Number: GB-ASTELLAS-2019US046179

PATIENT
  Age: 79 Year

DRUGS (1)
  1. SOLIFENACIN [Suspect]
     Active Substance: SOLIFENACIN
     Indication: HYPERTONIC BLADDER
     Route: 065
     Dates: start: 20170808, end: 20170903

REACTIONS (1)
  - Retrograde ejaculation [Recovered/Resolved]

NARRATIVE: CASE EVENT DATE: 201708
